FAERS Safety Report 9917794 (Version 1)
Quarter: 2014Q1

REPORT INFORMATION
  Report Type: Spontaneous
  Country: IT (occurrence: IT)
  Receive Date: 20140221
  Receipt Date: 20140221
  Transmission Date: 20141002
  Serious: Yes (Hospitalization)
  Sender: FDA-Public Use
  Company Number: IT-ABBVIE-14P-083-1201697-00

PATIENT
  Age: 28 Year
  Sex: Male
  Weight: 71 kg

DRUGS (2)
  1. ADALIMUMAB [Suspect]
     Route: 058
  2. ADALIMUMAB [Suspect]

REACTIONS (1)
  - Selective IgA immunodeficiency [Recovered/Resolved]
